FAERS Safety Report 14546719 (Version 1)
Quarter: 2018Q1

REPORT INFORMATION
  Report Type: Spontaneous
  Country: US (occurrence: US)
  Receive Date: 20180219
  Receipt Date: 20180219
  Transmission Date: 20180509
  Serious: No
  Sender: FDA-Public Use
  Company Number: US-TEVA-2018-US-859595

PATIENT
  Sex: Male

DRUGS (1)
  1. AMOXICILLIN. [Suspect]
     Active Substance: AMOXICILLIN
     Indication: EAR INFECTION
     Dosage: DOSE STRENGTH:  250 MG/5 ML
     Route: 048
     Dates: start: 201603

REACTIONS (2)
  - Urticaria [Unknown]
  - Skin reaction [Unknown]

NARRATIVE: CASE EVENT DATE: 201603
